FAERS Safety Report 5856451-1 (Version None)
Quarter: 2008Q3

REPORT INFORMATION
  Report Type: 
  Country: None (occurrence: None)
  Receive Date: 20080825
  Receipt Date: 20080506
  Transmission Date: 20090109
  Serious: No
  Sender: FDA-Public Use
  Company Number: A0726562A

PATIENT
  Age: 37 Year
  Sex: Male

DRUGS (4)
  1. VERAMYST [Suspect]
     Indication: UPPER RESPIRATORY TRACT INFECTION
     Dosage: 2SPR TWICE PER DAY
     Route: 045
     Dates: start: 20080429, end: 20080502
  2. ZITHROMAX [Concomitant]
  3. LOPID [Concomitant]
  4. FLAX SEED OIL [Concomitant]

REACTIONS (1)
  - ANOSMIA [None]
